FAERS Safety Report 10006330 (Version 1)
Quarter: 2014Q1

REPORT INFORMATION
  Report Type: Spontaneous
  Country: US (occurrence: US)
  Receive Date: 20140313
  Receipt Date: 20140313
  Transmission Date: 20141002
  Serious: Yes (Hospitalization)
  Sender: FDA-Public Use
  Company Number: US-BAYER-2014-037686

PATIENT
  Age: 45 Year
  Sex: Female
  Weight: 89.8 kg

DRUGS (17)
  1. YAZ [Suspect]
  2. YASMIN [Suspect]
  3. SINGULAIR [Concomitant]
     Dosage: 10 MG, UNK
     Route: 048
     Dates: start: 20081013
  4. DICLOFENAC [Concomitant]
     Dosage: 75 MG, UNK
     Route: 048
     Dates: start: 20081111
  5. IBUPROFEN [Concomitant]
     Dosage: 800 MG, UNK
     Route: 048
     Dates: start: 20090103
  6. ZYRTEC [Concomitant]
     Dosage: 10 MG, UNK
     Route: 048
  7. MOBIC [Concomitant]
     Dosage: 15 MG, UNK
     Route: 048
  8. PLAQUENIL [Concomitant]
     Dosage: 200 MG, UNK
     Route: 048
  9. ABILIFY [Concomitant]
     Dosage: 10 MG, UNK
     Route: 048
  10. ZOLOFT [Concomitant]
     Dosage: 10 MG 2 TABLETS DAILY
     Route: 048
  11. WELLBUTRIN [Concomitant]
     Dosage: 150 MG 2 TIMES DAILY
     Route: 048
  12. LOVAZA [Concomitant]
     Dosage: 2 G, 2 TIMES A DAY
     Route: 048
  13. VITAMIN B12 [Concomitant]
     Dosage: EVERY FRIDAY
     Route: 030
  14. MULTIVITAMIN [Concomitant]
     Dosage: 2 TABLET DAILY
     Route: 048
  15. AMBIEN [Concomitant]
     Dosage: 6.25MG AT BEDTIME AS NEEDED
     Route: 048
  16. NORCO [Concomitant]
  17. CLARITIN [Concomitant]

REACTIONS (1)
  - Deep vein thrombosis [Recovered/Resolved]
